FAERS Safety Report 18259692 (Version 2)
Quarter: 2020Q4

REPORT INFORMATION
  Report Type: Spontaneous
  Country: US (occurrence: US)
  Receive Date: 20200912
  Receipt Date: 20201020
  Transmission Date: 20210113
  Serious: No
  Sender: FDA-Public Use
  Company Number: US-ASTRAZENECA-2020SF14058

PATIENT
  Age: 28479 Day
  Sex: Female

DRUGS (1)
  1. BYDUREON BCISE [Suspect]
     Active Substance: EXENATIDE
     Route: 058
     Dates: start: 20200818

REACTIONS (3)
  - Incorrect dose administered by device [Unknown]
  - Blood glucose decreased [Unknown]
  - Device issue [Unknown]

NARRATIVE: CASE EVENT DATE: 20200831
